FAERS Safety Report 7690269-2 (Version None)
Quarter: 2011Q3

REPORT INFORMATION
  Report Type: 
  Country: None (occurrence: None)
  Receive Date: 20110818
  Receipt Date: 20110812
  Transmission Date: 20111222
  Serious: Yes (Other)
  Sender: FDA-Public Use
  Company Number: US-PFIZER INC-2011142619

PATIENT
  Sex: Female
  Weight: 88.435 kg

DRUGS (13)
  1. MULTI-VITAMINS [Concomitant]
     Dosage: UNK
  2. CHANTIX [Suspect]
     Dosage: 1 MG, 2X/DAY
     Dates: start: 20110101
  3. CELEXA [Concomitant]
     Dosage: 40 MG, DAILY
  4. SUCRALFATE [Concomitant]
     Dosage: 1 MG, 3X/DAY
  5. FENOFIBRIC ACID [Concomitant]
     Dosage: 135 MG, DAILY
     Route: 048
  6. SIMVASTATIN [Concomitant]
     Dosage: 40 MG, DAILY
  7. ACIPHEX [Concomitant]
     Dosage: 30 MG, DAILY
     Route: 048
  8. ABILIFY [Concomitant]
     Dosage: 7 MG IN THE MORNING, 10 MG AT NIGHT
  9. ATROPINE [Concomitant]
     Dosage: 1 MG, 2X/DAY
  10. SYNTHROID [Concomitant]
     Dosage: 112 UG, DAILY
     Route: 048
  11. CHANTIX [Suspect]
     Indication: SMOKING CESSATION THERAPY
     Dosage: UNK
     Route: 048
     Dates: start: 20110601
  12. CLONAZEPAM [Concomitant]
     Dosage: 1 MG, DAILY
  13. GABAPENTIN [Concomitant]
     Dosage: UNK

REACTIONS (3)
  - DYSPNOEA [None]
  - MUSCULOSKELETAL CHEST PAIN [None]
  - TONGUE DISORDER [None]
